FAERS Safety Report 8563455-7 (Version None)
Quarter: 2012Q3

REPORT INFORMATION
  Report Type: 
  Country: None (occurrence: None)
  Receive Date: 20120802
  Receipt Date: 20101102
  Transmission Date: 20120928
  Serious: Yes (Death, Hospitalization, Other)
  Sender: FDA-Public Use
  Company Number: US-BAYER-201011808NA

PATIENT
  Age: 36 Year
  Sex: Female
  Weight: 140.91 kg

DRUGS (7)
  1. YASMIN [Suspect]
     Indication: PREMENSTRUAL SYNDROME
     Route: 048
     Dates: start: 20020201, end: 20040701
  2. ALEVE COLD AND SINUS [Concomitant]
     Dosage: 2002 AND 2006
     Route: 065
  3. ORAL CONTRACEPTIVE NOS [Concomitant]
     Dosage: UNK
     Dates: start: 20070101
  4. YASMIN [Suspect]
     Indication: CONTRACEPTION
     Dosage: UNK
     Dates: start: 20020519, end: 20040321
  5. YAZ [Suspect]
     Dosage: 1 DF (DAILY DOSE), , ORAL
     Route: 048
     Dates: end: 20071125
  6. YASMIN [Suspect]
     Route: 048
     Dates: start: 20060801, end: 20071125
  7. AZITHROMYCIN [Concomitant]
     Dosage: 250 MG, UNK

REACTIONS (3)
  - RESPIRATORY FAILURE [None]
  - PULMONARY EMBOLISM [None]
  - HYPOTENSION [None]
